FAERS Safety Report 8598572-9 (Version None)
Quarter: 2012Q3

REPORT INFORMATION
  Report Type: 
  Country: None (occurrence: None)
  Receive Date: 20120816
  Receipt Date: 20120813
  Transmission Date: 20120928
  Serious: Yes (Other)
  Sender: FDA-Public Use
  Company Number: US-PFIZER INC-2012198238

PATIENT
  Age: 6 Decade
  Sex: Female
  Weight: 70 kg

DRUGS (1)
  1. RAPAMUNE [Suspect]
     Indication: BONE MARROW TRANSPLANT
     Dosage: 1 MG, 2X/DAY
     Dates: start: 20080601

REACTIONS (4)
  - MYOCARDIAL INFARCTION [None]
  - BLOOD CHOLESTEROL INCREASED [None]
  - ATRIOVENTRICULAR BLOCK [None]
  - BLOOD PRESSURE INCREASED [None]
